FAERS Safety Report 7580015-5 (Version None)
Quarter: 2011Q2

REPORT INFORMATION
  Report Type: 
  Country: None (occurrence: None)
  Receive Date: 20110629
  Receipt Date: 20110627
  Transmission Date: 20111010
  Serious: Yes (Life-Threatening, Other)
  Sender: FDA-Public Use
  Company Number: US-BRISTOL-MYERS SQUIBB COMPANY-15834278

PATIENT
  Age: 43 Year
  Sex: Female

DRUGS (6)
  1. ZANAFLEX [Concomitant]
  2. PRAVASTATIN [Concomitant]
  3. MULTI-VITAMIN [Concomitant]
  4. COUMADIN [Suspect]
     Indication: PROTEIN C DEFICIENCY
     Dosage: CURRENTLY ON 4MG/DAY. DOSAGE 3-6 MG DAILY
     Route: 048
     Dates: start: 20100101
  5. COUMADIN [Suspect]
     Indication: CEREBROVASCULAR ACCIDENT
     Dosage: CURRENTLY ON 4MG/DAY. DOSAGE 3-6 MG DAILY
     Route: 048
     Dates: start: 20100101
  6. FIORICET [Concomitant]

REACTIONS (2)
  - THROMBOSIS [None]
  - INTERNATIONAL NORMALISED RATIO DECREASED [None]
